FAERS Safety Report 8294884-7 (Version None)
Quarter: 2012Q2

REPORT INFORMATION
  Report Type: 
  Country: None (occurrence: None)
  Receive Date: 20120418
  Receipt Date: 20120321
  Transmission Date: 20120825
  Serious: No
  Sender: FDA-Public Use
  Company Number: US-BAYER-2012-025650

PATIENT
  Age: 84 Year
  Sex: Female
  Weight: 61 kg

DRUGS (3)
  1. ANXIOLYTICS [Concomitant]
  2. ALEVE (CAPLET) [Suspect]
     Indication: BACK PAIN
     Route: 048
  3. ALEVE (CAPLET) [Suspect]
     Indication: ARTHRITIS

REACTIONS (2)
  - EPIGASTRIC DISCOMFORT [None]
  - ABDOMINAL PAIN [None]
